FAERS Safety Report 25337040 (Version 1)
Quarter: 2025Q2

REPORT INFORMATION
  Report Type: Spontaneous
  Country: DE (occurrence: DE)
  Receive Date: 20250520
  Receipt Date: 20250520
  Transmission Date: 20250716
  Serious: Yes (Other)
  Sender: MYLAN
  Company Number: DE-GRUNENTHAL-2025-106278

PATIENT
  Age: 83 Year
  Sex: Female

DRUGS (9)
  1. TRAMADOL [Interacting]
     Active Substance: TRAMADOL
     Indication: Product used for unknown indication
     Dosage: 300 MILLIGRAM, QD (300 MILLIGRAM, 1/DAY)
  2. TRAMADOL [Interacting]
     Active Substance: TRAMADOL
     Dosage: 100 MILLIGRAM, QD (100 MILLIGRAM, 1/DAY)
  3. TRAMADOL [Interacting]
     Active Substance: TRAMADOL
     Dosage: 75 MILLIGRAM, QD (75 MILLIGRAM, 1/DAY)
  4. TRAMADOL [Interacting]
     Active Substance: TRAMADOL
     Dosage: 50 MILLIGRAM, QD (50 MILLIGRAM, 1/DAY)
  5. TRAMADOL [Interacting]
     Active Substance: TRAMADOL
     Dosage: 25 MILLIGRAM, QD (25 MILLIGRAM, 1/DAY)
  6. TRAMADOL [Interacting]
     Active Substance: TRAMADOL
     Dosage: 15 MILLIGRAM, QD (15 MILLIGRAM, 1/DAY)
  7. TRAMADOL [Interacting]
     Active Substance: TRAMADOL
     Dosage: 10 MILLIGRAM, QD (10 MILLIGRAM, 1/DAY)
  8. TRAMADOL [Interacting]
     Active Substance: TRAMADOL
     Dosage: 5 MILLIGRAM, QD (5 MILLIGRAM, 1/DAY)
  9. DULOXETINE [Interacting]
     Active Substance: DULOXETINE
     Indication: Product used for unknown indication
     Dosage: 60 MILLIGRAM, QD (60 MILLIGRAM, 1/DAY)

REACTIONS (6)
  - Delirium [Recovering/Resolving]
  - Drug dependence [Recovering/Resolving]
  - Dysarthria [Recovering/Resolving]
  - Depressed mood [Recovering/Resolving]
  - Drug withdrawal syndrome [Recovering/Resolving]
  - Drug interaction [Recovering/Resolving]
